FAERS Safety Report 7519227-5 (Version None)
Quarter: 2011Q2

REPORT INFORMATION
  Report Type: 
  Country: None (occurrence: None)
  Receive Date: 20110602
  Receipt Date: 20110208
  Transmission Date: 20111010
  Serious: No
  Sender: FDA-Public Use
  Company Number: US-BRISTOL-MYERS SQUIBB COMPANY-15537400

PATIENT

DRUGS (1)
  1. KOMBIGLYZE XR [Suspect]
     Dosage: 1DF=2.5/1000 UNIT NOT SPECIFIED. ONE IN AM AND ONE IN PM.

REACTIONS (1)
  - ABDOMINAL DISCOMFORT [None]
